FAERS Safety Report 12609007 (Version 1)
Quarter: 2016Q3

REPORT INFORMATION
  Report Type: Spontaneous
  Country: JP (occurrence: JP)
  Receive Date: 20160731
  Receipt Date: 20160731
  Transmission Date: 20161109
  Serious: Yes (Hospitalization)
  Sender: FDA-Public Use
  Company Number: JP-ALLERGAN-1627920

PATIENT
  Age: 50 Year
  Sex: Female
  Weight: 65.1 kg

DRUGS (1)
  1. MESALAZINE UNK [Suspect]
     Active Substance: MESALAMINE
     Indication: COLITIS ULCERATIVE
     Dosage: UNK
     Route: 048
     Dates: start: 200803, end: 20080510

REACTIONS (1)
  - Traumatic lung injury [Recovering/Resolving]

NARRATIVE: CASE EVENT DATE: 200804
